FAERS Safety Report 12172576 (Version 1)
Quarter: 2016Q1

REPORT INFORMATION
  Report Type: Spontaneous
  Country: US (occurrence: US)
  Receive Date: 20160311
  Receipt Date: 20160311
  Transmission Date: 20160526
  Serious: Yes (Other)
  Sender: FDA-Public Use
  Company Number: US-SA-2016SA049943

PATIENT
  Age: 53 Year
  Sex: Male

DRUGS (2)
  1. NAPROXEN. [Concomitant]
     Active Substance: NAPROXEN
  2. AUBAGIO [Suspect]
     Active Substance: TERIFLUNOMIDE
     Indication: MULTIPLE SCLEROSIS
     Route: 048
     Dates: start: 20160213

REACTIONS (1)
  - Fracture [Unknown]

NARRATIVE: CASE EVENT DATE: 20160303
